FAERS Safety Report 22247467 (Version 1)
Quarter: 2023Q2

REPORT INFORMATION
  Report Type: Spontaneous
  Country: FR (occurrence: FR)
  Receive Date: 20230425
  Receipt Date: 20230425
  Transmission Date: 20230722
  Serious: Yes (Hospitalization)
  Sender: FDA-Public Use
  Company Number: FR-AFSSAPS-RN2023000247

PATIENT
  Age: 58 Year
  Sex: Male

DRUGS (8)
  1. OLANZAPINE [Suspect]
     Active Substance: OLANZAPINE
     Indication: Bipolar disorder
     Dosage: 5 MILLIGRAM, DAILY, 5 MG LE SOIR
     Route: 048
     Dates: start: 202302
  2. RAMIPRIL [Suspect]
     Active Substance: RAMIPRIL
     Indication: Hypertension
     Dosage: 10 MILLIGRAM, DAILY, 10 MG LE MATIN
     Route: 048
     Dates: end: 20230217
  3. EZETIMIBE [Suspect]
     Active Substance: EZETIMIBE
     Indication: Hypercholesterolaemia
     Dosage: 10 MILLIGRAM, DAILY, 10 MG LE SOIR
     Route: 048
     Dates: end: 20230217
  4. ELIQUIS [Suspect]
     Active Substance: APIXABAN
     Indication: Thrombosis prophylaxis
     Dosage: 2 DOSAGE FORM, DAILY, 1 CP DE 2.5 MG MATIN ET SOIR
     Route: 048
     Dates: end: 20230217
  5. LORMETAZEPAM [Suspect]
     Active Substance: LORMETAZEPAM
     Indication: Insomnia
     Dosage: 2 MILLIGRAM, DAILY, 2 MG AU COUCHER
     Route: 048
     Dates: end: 20230217
  6. DIAZEPAM [Suspect]
     Active Substance: DIAZEPAM
     Indication: Bipolar disorder
     Dosage: 15 MILLIGRAM, DAILY, 5 MG MATIN, MIDI ET SOIR
     Route: 048
  7. VALPROIC ACID [Suspect]
     Active Substance: VALPROIC ACID
     Indication: Bipolar disorder
     Dosage: 2 GRAM, DAILY, 2 CP DE 500 MG MATIN ET SOIR
     Route: 048
     Dates: start: 202212
  8. ALFUZOSIN HYDROCHLORIDE [Suspect]
     Active Substance: ALFUZOSIN HYDROCHLORIDE
     Indication: Benign prostatic hyperplasia
     Dosage: 10 MILLIGRAM, DAILY, 10 MG LE SOIR
     Route: 048
     Dates: end: 20230217

REACTIONS (1)
  - Pancreatitis acute [Recovering/Resolving]

NARRATIVE: CASE EVENT DATE: 20230217
